FAERS Safety Report 10170847 (Version 1)
Quarter: 2014Q2

REPORT INFORMATION
  Report Type: Spontaneous
  Country: US (occurrence: US)
  Receive Date: 20140514
  Receipt Date: 20140514
  Transmission Date: 20141212
  Serious: Yes (Other)
  Sender: FDA-Public Use
  Company Number: US-ROCHE-1399889

PATIENT
  Sex: Male

DRUGS (4)
  1. NUTROPIN [Suspect]
     Indication: HYPOPITUITARISM
     Dosage: Q DAY 6 DAYS A WEEK
     Route: 058
     Dates: start: 20140306
  2. LEVOTHYROXINE [Concomitant]
  3. SINGULAIR [Concomitant]
  4. PREDNISONE [Concomitant]

REACTIONS (2)
  - Hypertension [Not Recovered/Not Resolved]
  - Wrong technique in drug usage process [Unknown]
